FAERS Safety Report 7540426-0 (Version None)
Quarter: 2011Q2

REPORT INFORMATION
  Report Type: 
  Country: None (occurrence: None)
  Receive Date: 20110603
  Receipt Date: 20110523
  Transmission Date: 20111010
  Serious: Yes (Hospitalization, Other)
  Sender: FDA-Public Use
  Company Number: TRP_07753_2011

PATIENT
  Sex: Female

DRUGS (3)
  1. PEG-INTRON [Suspect]
     Indication: HEPATITIS C
     Dates: start: 20110224
  2. RIBASPHERE [Suspect]
     Indication: HEPATITIS C
     Dosage: 1000 MG, 800 MG
     Dates: start: 20110101
  3. RIBASPHERE [Suspect]
     Indication: HEPATITIS C
     Dosage: 1000 MG, 800 MG
     Dates: start: 20110224, end: 20110101

REACTIONS (4)
  - INCREASED UPPER AIRWAY SECRETION [None]
  - RED BLOOD CELL COUNT DECREASED [None]
  - COUGH [None]
  - STRESS [None]
